FAERS Safety Report 25051359 (Version 2)
Quarter: 2025Q3

REPORT INFORMATION
  Report Type: Spontaneous
  Country: CA (occurrence: CA)
  Receive Date: 20250307
  Receipt Date: 20250810
  Transmission Date: 20251020
  Serious: Yes (Life-Threatening, Disabling, Other)
  Sender: ALEXION PHARMACEUTICALS
  Company Number: 001111487

PATIENT
  Age: 61 Year
  Sex: Female
  Weight: 65 kg

DRUGS (18)
  1. IMFINZI [Suspect]
     Active Substance: DURVALUMAB
     Indication: Non-small cell lung cancer stage III
  2. IMFINZI [Suspect]
     Active Substance: DURVALUMAB
     Indication: Lymphadenopathy
  3. IMFINZI [Suspect]
     Active Substance: DURVALUMAB
     Indication: Bronchial obstruction
  4. BETAHISTINE [Concomitant]
     Active Substance: BETAHISTINE
  5. CARBOPLATIN [Concomitant]
     Active Substance: CARBOPLATIN
  6. FAMOTIDINE [Concomitant]
     Active Substance: FAMOTIDINE
  7. HALOPERIDOL [Concomitant]
     Active Substance: HALOPERIDOL
  8. LEVOTHYROXINE [Suspect]
     Active Substance: LEVOTHYROXINE
  9. LORAZEPAM [Concomitant]
     Active Substance: LORAZEPAM
  10. MORPHINE [Concomitant]
     Active Substance: MORPHINE
  11. NIFEDIPINE [Concomitant]
     Active Substance: NIFEDIPINE
  12. OLANZAPINE [Concomitant]
     Active Substance: OLANZAPINE
  13. PACLITAXEL [Concomitant]
     Active Substance: PACLITAXEL
  14. PREDNISONE [Concomitant]
     Active Substance: PREDNISONE
  15. PREGABALIN [Concomitant]
     Active Substance: PREGABALIN
  16. RISEDRONATE SODIUM [Concomitant]
     Active Substance: RISEDRONATE SODIUM
  17. ALBUTEROL SULFATE [Concomitant]
     Active Substance: ALBUTEROL SULFATE
  18. SERTRALINE [Concomitant]
     Active Substance: SERTRALINE HYDROCHLORIDE

REACTIONS (1)
  - Tracheomalacia [Not Recovered/Not Resolved]
